FAERS Safety Report 22342859 (Version 1)
Quarter: 2023Q2

REPORT INFORMATION
  Report Type: Spontaneous
  Country: JP (occurrence: JP)
  Receive Date: 20230519
  Receipt Date: 20230519
  Transmission Date: 20230721
  Serious: Yes (Death, Other)
  Sender: FDA-Public Use
  Company Number: JP-UCBSA-2023025506

PATIENT

DRUGS (2)
  1. NEUPRO [Suspect]
     Active Substance: ROTIGOTINE
     Indication: Product used for unknown indication
     Dosage: 2.25 MILLIGRAM, TAPERING OF THE DOSE
  2. NEUPRO [Suspect]
     Active Substance: ROTIGOTINE
     Dosage: 2.25 MILLIGRAM

REACTIONS (2)
  - Death [Fatal]
  - Blood glucose increased [Unknown]
